FAERS Safety Report 9693266 (Version 1)
Quarter: 2013Q4

REPORT INFORMATION
  Report Type: Report from Study
  Country: US (occurrence: US)
  Receive Date: 20131118
  Receipt Date: 20131118
  Transmission Date: 20140711
  Serious: Yes (Death)
  Sender: FDA-Public Use
  Company Number: US-ROCHE-1305067

PATIENT
  Age: 67 Year
  Sex: Male
  Weight: 68 kg

DRUGS (4)
  1. AVASTIN [Suspect]
     Indication: PANCREATIC CARCINOMA
     Dosage: WITH 100 ML 0.9 % SODIUM CHLORIDE
     Route: 042
     Dates: start: 20111018
  2. AVASTIN [Suspect]
     Dosage: WITH 100 ML 0.9 % SODIUM CHLORIDE
     Route: 042
     Dates: start: 20111201
  3. BENDAMUSTINE [Concomitant]
     Dosage: WITH 350 ML 0.9 % SODIUM CHLORIDE
     Route: 042
     Dates: start: 20111018
  4. ACETAMINOPHEN [Concomitant]
     Dosage: DOSE RECEIVED ON 18/OCT/2011
     Route: 065

REACTIONS (1)
  - Death [Fatal]
